FAERS Safety Report 15472084 (Version 1)
Quarter: 2018Q4

REPORT INFORMATION
  Report Type: Spontaneous
  Country: US (occurrence: US)
  Receive Date: 20181008
  Receipt Date: 20181008
  Transmission Date: 20190205
  Serious: No
  Sender: FDA-Public Use
  Company Number: US-INTERSECT ENT, INC.-2055759

PATIENT
  Age: 56 Year
  Sex: Male

DRUGS (1)
  1. SINUVA [Suspect]
     Active Substance: MOMETASONE FUROATE
     Indication: NASAL POLYPS
     Route: 006
     Dates: start: 20180608

REACTIONS (2)
  - Drug ineffective [Unknown]
  - Fungal disease carrier [Unknown]

NARRATIVE: CASE EVENT DATE: 20180723
